FAERS Safety Report 9371100 (Version 1)
Quarter: 2013Q2

REPORT INFORMATION
  Report Type: Spontaneous
  Country: US (occurrence: None)
  Receive Date: 20130626
  Receipt Date: 20130626
  Transmission Date: 20140414
  Serious: Yes (Hospitalization)
  Sender: FDA-Public Use
  Company Number: None

PATIENT
  Age: 74 Year
  Sex: Female
  Weight: 63.5 kg

DRUGS (3)
  1. IFOSFAMIDE [Suspect]
  2. PACLITAXEL (TAXOL) [Suspect]
  3. PEGFILGRASTIM (NEULASTA) [Suspect]

REACTIONS (19)
  - Diarrhoea [None]
  - Hypokalaemia [None]
  - Hypernatraemia [None]
  - Lethargy [None]
  - Fall [None]
  - Contusion [None]
  - Urinary tract infection [None]
  - Renal failure chronic [None]
  - Hypoxic-ischaemic encephalopathy [None]
  - Culture urine positive [None]
  - Klebsiella infection [None]
  - Agitation [None]
  - Aggression [None]
  - Abnormal behaviour [None]
  - Tachycardia [None]
  - Normochromic normocytic anaemia [None]
  - Leukocytosis [None]
  - Dehydration [None]
  - Hallucination [None]
